FAERS Safety Report 5350749-1 (Version None)
Quarter: 2007Q2

REPORT INFORMATION
  Report Type: 
  Country: None (occurrence: None)
  Receive Date: 20070606
  Receipt Date: 20070606
  Transmission Date: 20071010
  Serious: No
  Sender: FDA-Public Use
  Company Number: None

PATIENT
  Sex: Female
  Weight: 50 kg

DRUGS (3)
  1. FLUDARABINE PHOSPHATE [Suspect]
     Indication: ACUTE MYELOID LEUKAEMIA
     Dosage: 51MG DAILY IV
     Route: 042
     Dates: start: 20061222, end: 20061226
  2. MELPHALAN [Suspect]
     Dosage: 238MG TIMES ONE IV
     Route: 042
     Dates: start: 20061227, end: 20061227
  3. CAMPATH [Concomitant]

REACTIONS (4)
  - CHOLESTASIS [None]
  - CRYPTOGENIC ORGANISING PNEUMONIA [None]
  - ESCHERICHIA SEPSIS [None]
  - RESPIRATORY DISORDER [None]
